FAERS Safety Report 26040186 (Version 2)
Quarter: 2025Q4

REPORT INFORMATION
  Report Type: Report from Study
  Country: US (occurrence: US)
  Receive Date: 20251113
  Receipt Date: 20251224
  Transmission Date: 20260117
  Serious: Yes (Hospitalization)
  Sender: ABBVIE
  Company Number: US-ABBVIE-6542320

PATIENT
  Age: 75 Year
  Sex: Male

DRUGS (4)
  1. VYALEV [Suspect]
     Active Substance: FOSCARBIDOPA\FOSLEVODOPA
     Indication: Parkinson^s disease
     Route: 058
     Dates: start: 20250908, end: 2025
  2. VYALEV [Suspect]
     Active Substance: FOSCARBIDOPA\FOSLEVODOPA
     Route: 058
     Dates: start: 20251008
  3. KEFLEX [Suspect]
     Active Substance: CEPHALEXIN
     Indication: Catheter site infection
     Route: 065
     Dates: start: 2025, end: 2025
  4. BACTRIM [Suspect]
     Active Substance: SULFAMETHOXAZOLE\TRIMETHOPRIM
     Indication: Catheter site infection
     Route: 065
     Dates: start: 2025, end: 2025

REACTIONS (7)
  - Injection site cellulitis [Recovering/Resolving]
  - Infection [Unknown]
  - Catheter site infection [Recovered/Resolved]
  - Catheter site bruise [Unknown]
  - Rash [Unknown]
  - Drug hypersensitivity [Unknown]
  - Drug hypersensitivity [Unknown]

NARRATIVE: CASE EVENT DATE: 20250101
